FAERS Safety Report 15786080 (Version 1)
Quarter: 2019Q1

REPORT INFORMATION
  Report Type: Spontaneous
  Country: US (occurrence: US)
  Receive Date: 20190103
  Receipt Date: 20190103
  Transmission Date: 20190417
  Serious: No
  Sender: FDA-Public Use
  Company Number: US-SA-2019SA000839

PATIENT
  Sex: Female

DRUGS (6)
  1. ZETIA [Concomitant]
     Active Substance: EZETIMIBE
     Dosage: TABLET 10 MG
  2. SYNTHROID [Concomitant]
     Active Substance: LEVOTHYROXINE SODIUM
     Dosage: TABLET 100 MCG
  3. ATORVASTATIN [Concomitant]
     Active Substance: ATORVASTATIN
     Dosage: TABLET 40 MG
  4. IRBESARTAN. [Concomitant]
     Active Substance: IRBESARTAN
     Dosage: TABLET 150 MG
  5. RISPERIDONE. [Concomitant]
     Active Substance: RISPERIDONE
     Dosage: TABLET 2 MG
  6. AUBAGIO [Suspect]
     Active Substance: TERIFLUNOMIDE
     Dosage: 14 MG, QD
     Route: 048
     Dates: start: 20171028

REACTIONS (1)
  - Diarrhoea [Unknown]
